FAERS Safety Report 5852429-2 (Version None)
Quarter: 2008Q3

REPORT INFORMATION
  Report Type: 
  Country: None (occurrence: None)
  Receive Date: 20080821
  Receipt Date: 20080818
  Transmission Date: 20090109
  Serious: Yes (Hospitalization)
  Sender: FDA-Public Use
  Company Number: US-BAYER-200813040NA

PATIENT
  Age: 36 Year
  Sex: Female
  Weight: 51 kg

DRUGS (1)
  1. YAZ [Suspect]
     Indication: PREMENSTRUAL SYNDROME
     Route: 048
     Dates: start: 20071111, end: 20071125

REACTIONS (4)
  - AMNESIA [None]
  - BLOOD POTASSIUM DECREASED [None]
  - EYELID FUNCTION DISORDER [None]
  - TRANSIENT ISCHAEMIC ATTACK [None]
